FAERS Safety Report 8960725 (Version 1)
Quarter: 2012Q4

REPORT INFORMATION
  Report Type: 
  Country: US (occurrence: US)
  Receive Date: 20121213
  Receipt Date: 20121213
  Transmission Date: 20130627
  Serious: No
  Sender: FDA-Public Use
  Company Number: US-009507513-1212USA005001

PATIENT
  Sex: Female

DRUGS (2)
  1. CLARITIN REDITABS [Suspect]
     Indication: HYPERSENSITIVITY
     Dosage: 10 mg, Once
     Route: 048
     Dates: start: 20121202
  2. CLARITIN REDITABS [Suspect]
     Dosage: 5 mg, Once
     Route: 048
     Dates: start: 20121202

REACTIONS (2)
  - Headache [Not Recovered/Not Resolved]
  - Overdose [Unknown]
